FAERS Safety Report 8588454-0 (Version None)
Quarter: 2012Q3

REPORT INFORMATION
  Report Type: 
  Country: None (occurrence: None)
  Receive Date: 20120813
  Receipt Date: 20120802
  Transmission Date: 20120928
  Serious: Yes (Hospitalization)
  Sender: FDA-Public Use
  Company Number: FR-JNJFOC-20120803019

PATIENT
  Age: 52 Year
  Sex: Female

DRUGS (3)
  1. ESTRADIOL [Concomitant]
     Dosage: RECEIVED AT LONG TERM
     Route: 003
  2. REMICADE [Suspect]
     Indication: PRODUCT USED FOR UNKNOWN INDICATION
     Route: 042
     Dates: start: 20120706
  3. PROGESTERONE [Concomitant]
     Dosage: RECEIVED AT LONG TERM
     Route: 048

REACTIONS (3)
  - PYREXIA [None]
  - HEADACHE [None]
  - VOMITING PROJECTILE [None]
